FAERS Safety Report 5249936-2 (Version None)
Quarter: 2007Q1

REPORT INFORMATION
  Report Type: 
  Country: None (occurrence: None)
  Receive Date: 20070228
  Receipt Date: 20060713
  Transmission Date: 20070707
  Serious: Yes (Life-Threatening, Hospitalization, Disabling, Other)
  Sender: FDA-Public Use
  Company Number: US-GLAXOSMITHKLINE-A0587970A

PATIENT
  Age: 17 Year
  Sex: Female

DRUGS (3)
  1. LAMICTAL [Suspect]
     Indication: BIPOLAR DISORDER
     Dosage: 200MG PER DAY
     Route: 048
     Dates: start: 20051101, end: 20051225
  2. SEROQUEL [Concomitant]
  3. VISTARIL [Concomitant]

REACTIONS (4)
  - INTENTIONAL OVERDOSE [None]
  - ORAL SOFT TISSUE DISORDER [None]
  - STEVENS-JOHNSON SYNDROME [None]
  - SUICIDE ATTEMPT [None]
